FAERS Safety Report 12873769 (Version 1)
Quarter: 2016Q4

REPORT INFORMATION
  Report Type: Spontaneous
  Country: CA (occurrence: CA)
  Receive Date: 20161021
  Receipt Date: 20161021
  Transmission Date: 20170207
  Serious: Yes (Other)
  Sender: FDA-Public Use
  Company Number: CA-JNJFOC-20161016816

PATIENT
  Age: 68 Year
  Sex: Male
  Weight: 113.38 kg

DRUGS (6)
  1. FUROSEMIDE. [Concomitant]
     Active Substance: FUROSEMIDE
     Route: 065
  2. XARELTO [Suspect]
     Active Substance: RIVAROXABAN
     Indication: DEEP VEIN THROMBOSIS
     Dosage: 15 MG, BID
     Route: 048
  3. XARELTO [Suspect]
     Active Substance: RIVAROXABAN
     Indication: COAGULOPATHY
     Route: 048
  4. XARELTO [Suspect]
     Active Substance: RIVAROXABAN
     Indication: COAGULOPATHY
     Dosage: 15 MG, BID
     Route: 048
  5. XARELTO [Suspect]
     Active Substance: RIVAROXABAN
     Indication: DEEP VEIN THROMBOSIS
     Route: 048
  6. COVERSYL [Concomitant]
     Active Substance: PERINDOPRIL

REACTIONS (19)
  - Chromaturia [Recovering/Resolving]
  - Movement disorder [Recovering/Resolving]
  - Urine odour abnormal [Recovering/Resolving]
  - Wound haemorrhage [Recovering/Resolving]
  - Asthenia [Recovering/Resolving]
  - Myalgia [Recovering/Resolving]
  - Red cell distribution width increased [Recovering/Resolving]
  - Renal cyst [Recovering/Resolving]
  - Arthralgia [Recovering/Resolving]
  - Back pain [Recovering/Resolving]
  - Blood creatinine increased [Recovering/Resolving]
  - Muscular weakness [Recovering/Resolving]
  - Muscle spasms [Recovering/Resolving]
  - Pancreatic cyst [Recovering/Resolving]
  - Epistaxis [Recovering/Resolving]
  - Gait disturbance [Recovering/Resolving]
  - Contusion [Recovering/Resolving]
  - Renal mass [Recovering/Resolving]
  - Skin lesion [Recovering/Resolving]
